FAERS Safety Report 16764241 (Version 1)
Quarter: 2019Q3

REPORT INFORMATION
  Report Type: Spontaneous
  Country: US (occurrence: US)
  Receive Date: 20190902
  Receipt Date: 20190902
  Transmission Date: 20191005
  Serious: Yes (Hospitalization, Other)
  Sender: FDA-Public Use
  Company Number: US-ALLERGAN-1935632US

PATIENT
  Sex: Female

DRUGS (5)
  1. MIRTAZAPINE. [Concomitant]
     Active Substance: MIRTAZAPINE
  2. CARVEDILOL. [Concomitant]
     Active Substance: CARVEDILOL
  3. HYDROCHLOROTHIAZIDE UNK [Suspect]
     Active Substance: HYDROCHLOROTHIAZIDE
     Indication: PRODUCT USED FOR UNKNOWN INDICATION
     Route: 065
  4. LOSARTAN. [Concomitant]
     Active Substance: LOSARTAN
  5. ATORVASTATIN [Concomitant]
     Active Substance: ATORVASTATIN

REACTIONS (9)
  - Polyuria [Unknown]
  - Polydipsia [Unknown]
  - Escherichia urinary tract infection [Recovering/Resolving]
  - Hypotension [Unknown]
  - Hypercalcaemia [Unknown]
  - Eye disorder [Unknown]
  - Allodynia [Unknown]
  - Breast neoplasm [Unknown]
  - Mental status changes [Recovering/Resolving]
